FAERS Safety Report 23543566 (Version 4)
Quarter: 2024Q2

REPORT INFORMATION
  Report Type: Spontaneous
  Country: CH (occurrence: CH)
  Receive Date: 20240220
  Receipt Date: 20240410
  Transmission Date: 20240715
  Serious: Yes (Other)
  Sender: FDA-Public Use
  Company Number: CH-MYLANLABS-2024M1012548

PATIENT
  Age: 63 Year
  Sex: Male

DRUGS (18)
  1. IBUPROFEN [Suspect]
     Active Substance: IBUPROFEN
     Indication: Product used for unknown indication
     Dosage: UNK (800 TABLET)
     Route: 065
  2. IBUPROFEN [Suspect]
     Active Substance: IBUPROFEN
     Indication: Product used for unknown indication
     Dosage: 600 MILLIGRAM, Q6H (600 MG EVERY 6 HOURS)
     Route: 065
  3. IBUPROFEN [Suspect]
     Active Substance: IBUPROFEN
     Dosage: 1200 MILLIGRAM, BID AT 06.00 IN THE MORNING AND 18.00 IN THE EVENING
     Route: 065
  4. IBUPROFEN [Suspect]
     Active Substance: IBUPROFEN
     Indication: Product used for unknown indication
     Dosage: UNK
     Route: 065
  5. IBUPROFEN [Suspect]
     Active Substance: IBUPROFEN
     Dosage: 2 DOSAGE FORM (2 SACHETS)
     Route: 065
  6. AMLODIPIN HELVEPHARM [Concomitant]
     Dosage: 5 MILLIGRAM, BID 1-01-0 (30 PIECES)
     Route: 065
     Dates: start: 20230324
  7. ARCOXIA [Concomitant]
     Active Substance: ETORICOXIB
     Dosage: 30 MILLIGRAM, QD 0-0-1-0 (28 PIECES)
     Route: 065
     Dates: start: 20230324
  8. BISOPROLOL [Concomitant]
     Active Substance: BISOPROLOL\BISOPROLOL FUMARATE
     Dosage: 5 MILLIGRAM, 100 PIECES 2-0-2-0
     Route: 065
     Dates: start: 20230324
  9. DUTASTERIDE\TAMSULOSIN [Concomitant]
     Active Substance: DUTASTERIDE\TAMSULOSIN
     Dosage: 0.5MG/0.4MG, 30 PIECES QD 1-0-0-0
     Route: 065
     Dates: start: 20230324
  10. JARDIANCE [Concomitant]
     Active Substance: EMPAGLIFLOZIN
     Dosage: 10 MILLIGRAM, BID 30 PIECES 1/2 - 1/2 -0-0
     Route: 065
     Dates: start: 20230324
  11. Lisinopril hct helvepharm [Concomitant]
     Dosage: 20/12.5 30 PIECES, BID 1- 1/2 -0-0
     Route: 065
     Dates: start: 20230324
  12. MAGNESIUM [Concomitant]
     Active Substance: MAGNESIUM
     Dosage: 300 MILLIGRAM, SUGAR FREE 50 PIECES 1, 0-0-1 BID
     Route: 065
     Dates: start: 20230324
  13. METFORMIN HELVEPHARM [Concomitant]
     Dosage: 1000 MILLIGRAM, 120 PIECES BID 1-0-1-0
     Route: 065
     Dates: start: 20230324
  14. PALEXIA [Concomitant]
     Active Substance: TAPENTADOL HYDROCHLORIDE
     Dosage: 50 MILLIGRAM, 60 PIECES 1, 1-0-1-0
     Route: 065
     Dates: start: 20230324
  15. PANTOPRAZOLE SODIUM [Concomitant]
     Active Substance: PANTOPRAZOLE SODIUM
     Dosage: 40 MILLIGRAM, QD BLISTERS 30 PIECES, 1-0-0
     Route: 065
     Dates: start: 20230324
  16. XULTOPHY 100/3.6 [Concomitant]
     Active Substance: INSULIN DEGLUDEC\LIRAGLUTIDE
     Dosage: 3.6 MILLIGRAM PER MILLILITRE, QD 3 READY TO USE PEN 3ML, 40-0-0-0, NEW 42
     Route: 065
     Dates: start: 20230324
  17. IBUPROFEN [Concomitant]
     Active Substance: IBUPROFEN
     Dosage: 600 MILLIGRAM, PRN (100 PIECES 1, IF NEEDED - AS NEEDED)
     Route: 065
     Dates: start: 20230324
  18. IBUPROFEN [Concomitant]
     Active Substance: IBUPROFEN
     Dosage: 800 MILLIGRAM, PRN (RETARD TABLETS 16 PIECES IF NEEDED, 0-0-0-0 / AS NEEDED)
     Route: 065
     Dates: start: 20230324

REACTIONS (8)
  - Drug dependence [Unknown]
  - Malaise [Unknown]
  - Drug ineffective [Unknown]
  - Product availability issue [Unknown]
  - Off label use [Unknown]
  - Impaired quality of life [Unknown]
  - Product packaging quantity issue [Unknown]
  - Intentional overdose [Unknown]
